FAERS Safety Report 16432528 (Version 7)
Quarter: 2020Q1

REPORT INFORMATION
  Report Type: Report from Study
  Country: DE (occurrence: DE)
  Receive Date: 20190614
  Receipt Date: 20200228
  Transmission Date: 20200409
  Serious: Yes (Death, Hospitalization, Other)
  Sender: FDA-Public Use
  Company Number: DE-ACTELION-A-CH2019-191361

PATIENT
  Age: 68 Year
  Sex: Male
  Weight: 66 kg

DRUGS (19)
  1. UPTRAVI [Suspect]
     Active Substance: SELEXIPAG
     Indication: PULMONARY ARTERIAL HYPERTENSION
     Dosage: 1400 MCG, QD
     Route: 048
     Dates: start: 20181206, end: 201907
  2. L-THYROXIN [Concomitant]
     Active Substance: LEVOTHYROXINE SODIUM
     Indication: HYPOTHYROIDISM
     Dosage: 100 MCG, OD
     Route: 048
  3. TORASEMIDE [Concomitant]
     Active Substance: TORSEMIDE
     Indication: DIURETIC THERAPY
     Dosage: 40 MG, BID
     Route: 048
  4. OPSUMIT [Suspect]
     Active Substance: MACITENTAN
     Indication: PULMONARY ARTERIAL HYPERTENSION
     Dosage: 10 MG, QD
     Route: 048
     Dates: start: 2016, end: 20191110
  5. LAXOBERAL [Concomitant]
     Active Substance: SODIUM PICOSULFATE
     Indication: LAXATIVE SUPPORTIVE CARE
     Dosage: UNK , OD
     Dates: start: 2019
  6. MACROGOL [Concomitant]
     Active Substance: POLYETHYLENE GLYCOLS
     Indication: CONSTIPATION
     Dosage: 1 DF, OD
     Route: 048
     Dates: start: 201907
  7. MST [Concomitant]
     Dosage: 10 MG, TID
     Dates: start: 201910
  8. TAVOR [Concomitant]
     Indication: RESTLESSNESS
     Dosage: 1 MG, PRN
     Dates: start: 201910
  9. UPTRAVI [Suspect]
     Active Substance: SELEXIPAG
     Dosage: 400 MCG, QD
     Route: 048
     Dates: start: 20181115, end: 20181121
  10. ALDACTONE [Concomitant]
     Active Substance: SPIRONOLACTONE
     Indication: DIURETIC THERAPY
     Dosage: 25 MG, OD
     Dates: start: 2019
  11. UPTRAVI [Suspect]
     Active Substance: SELEXIPAG
     Dosage: 1200 MCG, QD
     Route: 048
     Dates: start: 20181129, end: 20181205
  12. SPIRONOLACTONE. [Concomitant]
     Active Substance: SPIRONOLACTONE
     Indication: DIURETIC THERAPY
     Dosage: 25 MG, OD
     Dates: start: 201907
  13. ZOPICLONE [Concomitant]
     Active Substance: ZOPICLONE
     Indication: SLEEP DISORDER
     Dosage: 7.5 MG, OD
  14. PANTOZOL [Concomitant]
     Active Substance: PANTOPRAZOLE SODIUM
     Indication: HYPERCHLORHYDRIA
     Dosage: 40 MG, BID
     Route: 048
     Dates: start: 20181221
  15. XIPAMID [Concomitant]
     Active Substance: XIPAMIDE
     Indication: DIURETIC THERAPY
     Dosage: 10 MG, OD
     Dates: start: 2019
  16. ZOPICLONE [Concomitant]
     Active Substance: ZOPICLONE
     Dosage: 5 MG, PRN
     Dates: start: 201910
  17. CAPROS [Concomitant]
     Indication: PAIN
     Dosage: 5 MG, PRN
     Dates: start: 201910
  18. UPTRAVI [Suspect]
     Active Substance: SELEXIPAG
     Dosage: 800 MCG, QD
     Route: 048
     Dates: start: 20181122, end: 20181128
  19. TADALAFIL. [Concomitant]
     Active Substance: TADALAFIL
     Indication: PULMONARY ARTERIAL HYPERTENSION
     Dosage: 40 MG, QD
     Route: 048
     Dates: start: 2016, end: 20190418

REACTIONS (13)
  - C-reactive protein increased [Fatal]
  - Blood creatinine increased [Unknown]
  - Gamma-glutamyltransferase increased [Unknown]
  - Creatinine renal clearance abnormal [Unknown]
  - Blood urea increased [Unknown]
  - Hypothyroidism [Not Recovered/Not Resolved]
  - Weight increased [Unknown]
  - Blood thyroid stimulating hormone increased [Not Recovered/Not Resolved]
  - Acute kidney injury [Unknown]
  - Right ventricular failure [Fatal]
  - Disease progression [Unknown]
  - Pulmonary arterial hypertension [Unknown]
  - Condition aggravated [Unknown]

NARRATIVE: CASE EVENT DATE: 20181220
